FAERS Safety Report 17288996 (Version 6)
Quarter: 2021Q1

REPORT INFORMATION
  Report Type: Spontaneous
  Country: US (occurrence: US)
  Receive Date: 20200120
  Receipt Date: 20210216
  Transmission Date: 20210419
  Serious: Yes (Other)
  Sender: FDA-Public Use
  Company Number: US-PFIZER INC-2020023451

PATIENT
  Age: 65 Year
  Sex: Female
  Weight: 59 kg

DRUGS (2)
  1. LYRICA [Suspect]
     Active Substance: PREGABALIN
     Indication: DIABETIC NEUROPATHY
     Dosage: 150 MG, 2X/DAY
     Route: 048
  2. LYRICA [Suspect]
     Active Substance: PREGABALIN
     Indication: FIBROMYALGIA

REACTIONS (9)
  - Withdrawal syndrome [Recovered/Resolved]
  - Illness [Unknown]
  - Stress [Unknown]
  - Product dose omission issue [Unknown]
  - Feeling abnormal [Unknown]
  - Cerebrovascular accident [Unknown]
  - Visual impairment [Unknown]
  - Influenza like illness [Recovered/Resolved]
  - Asthma [Unknown]
